FAERS Safety Report 7835747-8 (Version None)
Quarter: 2011Q4

REPORT INFORMATION
  Report Type: 
  Country: None (occurrence: None)
  Receive Date: 20111024
  Receipt Date: 20111019
  Transmission Date: 20120403
  Serious: Yes (Other)
  Sender: FDA-Public Use
  Company Number: US-PFIZER INC-2011252619

PATIENT
  Sex: Male
  Weight: 48.526 kg

DRUGS (6)
  1. CHANTIX [Suspect]
     Indication: SMOKING CESSATION THERAPY
     Dosage: 0.5 MG, 1X/DAY
     Route: 048
     Dates: start: 20110921
  2. SIMVASTATIN [Concomitant]
     Dosage: 40 MG, 1X/DAY
  3. CHANTIX [Suspect]
     Dosage: UNK
     Route: 048
  4. VITAMIN B-12 [Concomitant]
     Dosage: 1000 UG, 1X/DAY
  5. COUMADIN [Concomitant]
     Dosage: UNK
  6. LORATADINE [Concomitant]
     Dosage: 10 MG, 1X/DAY

REACTIONS (1)
  - INTERNATIONAL NORMALISED RATIO ABNORMAL [None]
